FAERS Safety Report 13212633 (Version 1)
Quarter: 2017Q1

REPORT INFORMATION
  Report Type: Spontaneous
  Country: BR (occurrence: BR)
  Receive Date: 20170210
  Receipt Date: 20170210
  Transmission Date: 20170428
  Serious: Yes (Death, Hospitalization)
  Sender: FDA-Public Use
  Company Number: BR-SA-2017SA021820

PATIENT
  Age: 71 Year
  Sex: Male
  Weight: 89.7 kg

DRUGS (9)
  1. DEXAMETHASONE. [Concomitant]
     Active Substance: DEXAMETHASONE
     Route: 065
  2. ALLOPURINOL. [Concomitant]
     Active Substance: ALLOPURINOL
     Route: 065
  3. DEOCIL [Concomitant]
     Active Substance: KETOROLAC TROMETHAMINE
     Route: 065
  4. TRAMADOL. [Concomitant]
     Active Substance: TRAMADOL
     Route: 065
  5. SINVASCOR [Concomitant]
     Active Substance: SIMVASTATIN
     Route: 065
  6. ARADOIS [Concomitant]
     Active Substance: LOSARTAN POTASSIUM
     Route: 065
  7. METAMIZOLE [Concomitant]
     Active Substance: METAMIZOLE
     Route: 065
  8. TAXOTERE [Suspect]
     Active Substance: DOCETAXEL
     Indication: PROSTATE CANCER
     Route: 042
     Dates: start: 20160927, end: 20160927
  9. TAXOTERE [Suspect]
     Active Substance: DOCETAXEL
     Indication: PROSTATE CANCER
     Route: 042
     Dates: start: 20160705, end: 20160705

REACTIONS (13)
  - Multiple organ dysfunction syndrome [Fatal]
  - Dyspnoea [Unknown]
  - Traumatic lung injury [Unknown]
  - Condition aggravated [Unknown]
  - Tracheostomy [Unknown]
  - Febrile neutropenia [Unknown]
  - Lung infiltration [Recovering/Resolving]
  - Aspergillus test [Unknown]
  - Pyrexia [Unknown]
  - PaO2/FiO2 ratio decreased [Unknown]
  - Bacterial infection [Unknown]
  - Renal failure [Unknown]
  - Dialysis [Unknown]
